FAERS Safety Report 20171439 (Version 1)
Quarter: 2021Q4

REPORT INFORMATION
  Report Type: Spontaneous
  Country: US (occurrence: US)
  Receive Date: 20211210
  Receipt Date: 20211210
  Transmission Date: 20220303
  Serious: No
  Sender: FDA-Public Use
  Company Number: US-ELI_LILLY_AND_COMPANY-US202111006544

PATIENT
  Age: 64 Year
  Sex: Male

DRUGS (5)
  1. HUMALOG [Suspect]
     Active Substance: INSULIN LISPRO
     Indication: Type 1 diabetes mellitus
     Dosage: 25 U, DAILY
     Route: 058
     Dates: start: 2001
  2. HUMALOG [Suspect]
     Active Substance: INSULIN LISPRO
     Indication: Type 1 diabetes mellitus
     Dosage: 25 U, DAILY
     Route: 058
     Dates: start: 2001
  3. HUMALOG [Suspect]
     Active Substance: INSULIN LISPRO
     Dosage: 25 U, DAILY
     Route: 058
  4. HUMALOG [Suspect]
     Active Substance: INSULIN LISPRO
     Dosage: 25 U, DAILY
     Route: 058
  5. TRESIBA [Concomitant]
     Active Substance: INSULIN DEGLUDEC
     Indication: Type 1 diabetes mellitus
     Dosage: 30 U, DAILY
     Route: 065

REACTIONS (3)
  - Blood glucose increased [Recovered/Resolved]
  - Nasopharyngitis [Recovering/Resolving]
  - Product dose omission issue [Unknown]

NARRATIVE: CASE EVENT DATE: 20211111
